FAERS Safety Report 4489422-0 (Version None)
Quarter: 2004Q4

REPORT INFORMATION
  Report Type: 
  Country: None (occurrence: None)
  Receive Date: 20041101
  Receipt Date: 20041022
  Transmission Date: 20050328
  Serious: Yes (Hospitalization)
  Sender: FDA-Public Use
  Company Number: PT-ABBOTT-04P-130-0278443-00

PATIENT
  Sex: Female

DRUGS (3)
  1. DEPAKINE CHRONO TABLETS [Suspect]
     Indication: DRUG USE FOR UNKNOWN INDICATION
     Route: 048
     Dates: start: 20000505
  2. FLUCONAZOLE [Suspect]
     Indication: VAGINAL CANDIDIASIS
     Route: 048
     Dates: start: 20000530
  3. CEFATRIZINE PROPYLENEGLYCOLATE [Concomitant]
     Indication: PHARYNGITIS
     Route: 048
     Dates: start: 20000521, end: 20000529

REACTIONS (2)
  - ANGIONEUROTIC OEDEMA [None]
  - URTICARIA [None]
